FAERS Safety Report 7438058-8 (Version None)
Quarter: 2011Q2

REPORT INFORMATION
  Report Type: 
  Country: None (occurrence: None)
  Receive Date: 20110419
  Receipt Date: 20110404
  Transmission Date: 20111010
  Serious: Yes (Other)
  Sender: FDA-Public Use
  Company Number: 030855

PATIENT
  Sex: Female

DRUGS (4)
  1. XYZAL [Suspect]
     Indication: RHINITIS ALLERGIC
     Dosage: 20 MG QD, ORAL
     Route: 048
     Dates: start: 20110402
  2. TAGAMET [Concomitant]
  3. ARICEPT [Concomitant]
  4. ZETIA [Concomitant]

REACTIONS (1)
  - RASH [None]
